FAERS Safety Report 25863435 (Version 1)
Quarter: 2025Q3

REPORT INFORMATION
  Report Type: Spontaneous
  Country: IL (occurrence: IL)
  Receive Date: 20250930
  Receipt Date: 20250930
  Transmission Date: 20251020
  Serious: Yes (Hospitalization, Other)
  Sender: RANBAXY
  Company Number: IL-SUN PHARMACEUTICAL INDUSTRIES LTD-2025R1-527739

PATIENT
  Age: 30 Year
  Sex: Female

DRUGS (1)
  1. PIROXICAM BETADEX [Suspect]
     Active Substance: PIROXICAM BETADEX
     Indication: Product used for unknown indication
     Dosage: 20 MILLIGRAM, QD
     Route: 065

REACTIONS (3)
  - Gastrointestinal haemorrhage [Recovering/Resolving]
  - Tachycardia [Recovering/Resolving]
  - Anaemia [Recovering/Resolving]
